FAERS Safety Report 10739616 (Version 1)
Quarter: 2015Q1

REPORT INFORMATION
  Report Type: Spontaneous
  Country: US (occurrence: US)
  Receive Date: 20150126
  Receipt Date: 20150126
  Transmission Date: 20150721
  Serious: Yes (Hospitalization)
  Sender: FDA-Public Use
  Company Number: US-JNJFOC-20150110520

PATIENT
  Age: 20 Year
  Sex: Female

DRUGS (3)
  1. NON THERAPEUTIC PRODUCT [Suspect]
     Active Substance: UNSPECIFIED INGREDIENT
     Indication: SUICIDE ATTEMPT
     Route: 048
  2. APAP [Suspect]
     Active Substance: ACETAMINOPHEN
     Route: 048
  3. APAP [Suspect]
     Active Substance: ACETAMINOPHEN
     Indication: SUICIDE ATTEMPT
     Dosage: 75 GRAMS ESTIMATED, 150 TABS
     Route: 048
     Dates: start: 20060915

REACTIONS (6)
  - Somnolence [Recovering/Resolving]
  - Tachycardia [Recovering/Resolving]
  - Intentional overdose [Unknown]
  - Nausea [Recovering/Resolving]
  - Suicide attempt [None]
  - Lethargy [Recovering/Resolving]

NARRATIVE: CASE EVENT DATE: 20060915
